FAERS Safety Report 23016251 (Version 1)
Quarter: 2023Q4

REPORT INFORMATION
  Report Type: Spontaneous
  Country: US (occurrence: US)
  Receive Date: 20231002
  Receipt Date: 20231002
  Transmission Date: 20240110
  Serious: No
  Sender: FDA-Public Use
  Company Number: US-MEDUNIK-2023US000259

PATIENT

DRUGS (7)
  1. PHEBURANE [Suspect]
     Active Substance: SODIUM PHENYLBUTYRATE
     Indication: Ornithine transcarbamoylase deficiency
     Dosage: 4.5 GRAM, TID
     Dates: start: 20230704, end: 20230721
  2. CITRULLINE [Concomitant]
     Active Substance: CITRULLINE
     Indication: Product used for unknown indication
  3. LAMICTAL [Concomitant]
     Active Substance: LAMOTRIGINE
     Indication: Product used for unknown indication
  4. LEVOCARNITINE [Concomitant]
     Active Substance: LEVOCARNITINE
     Indication: Product used for unknown indication
  5. LEXAPRO [Concomitant]
     Active Substance: ESCITALOPRAM OXALATE
     Indication: Product used for unknown indication
  6. ONDANSETRON [Concomitant]
     Active Substance: ONDANSETRON
     Indication: Product used for unknown indication
  7. WELLBUTRIN [Concomitant]
     Active Substance: BUPROPION HYDROCHLORIDE
     Indication: Product used for unknown indication

REACTIONS (6)
  - Pain [Recovered/Resolved]
  - Fatigue [Recovered/Resolved]
  - Ammonia increased [Recovered/Resolved]
  - Abdominal distension [Recovered/Resolved]
  - Abdominal discomfort [Recovered/Resolved]
  - Hypersomnia [Recovered/Resolved]
